FAERS Safety Report 8188238 (Version 2)
Quarter: 2012Q4

REPORT INFORMATION
  Report Type: 
  Country: US (occurrence: US)
  Receive Date: 20111018
  Receipt Date: 20121015
  Transmission Date: 20130627
  Serious: No
  Sender: FDA-Public Use
  Company Number: US-ASTRAZENECA-2010SE39308

PATIENT
  Age: 74 Year
  Sex: Female

DRUGS (2)
  1. SYMBICORT PMDI [Suspect]
     Route: 055
  2. NEXIUM [Suspect]
     Route: 048

REACTIONS (4)
  - Alveolitis allergic [Unknown]
  - Lymphangioleiomyomatosis [Unknown]
  - Malaise [Unknown]
  - Hearing impaired [Unknown]
